FAERS Safety Report 24556664 (Version 1)
Quarter: 2024Q4

REPORT INFORMATION
  Report Type: Spontaneous
  Country: CN (occurrence: CN)
  Receive Date: 20241028
  Receipt Date: 20241028
  Transmission Date: 20250115
  Serious: Yes (Hospitalization, Other)
  Sender: BAXTER
  Company Number: None

PATIENT
  Age: 40 Year
  Sex: Male
  Weight: 62 kg

DRUGS (6)
  1. CYCLOPHOSPHAMIDE [Suspect]
     Active Substance: CYCLOPHOSPHAMIDE
     Indication: Breast cancer female
     Dosage: 0.97 G, ONE TIME IN ONE DAY, DILUTED WITH 250ML OF 0.9% SODIUM CHLORIDE
     Route: 041
     Dates: start: 20240920, end: 20240920
  2. CYCLOPHOSPHAMIDE [Suspect]
     Active Substance: CYCLOPHOSPHAMIDE
     Indication: Chemotherapy
  3. SODIUM CHLORIDE [Suspect]
     Active Substance: SODIUM CHLORIDE
     Indication: Medication dilution
     Dosage: 250 ML (0.9%), ONE TIME IN ONE DAY, USED TO DILUTE CYCLOPHOSPHAMIDE FOR INJECTION 0.97G, DOSAGE FORM
     Route: 041
     Dates: start: 20240920, end: 20240920
  4. DEXTROSE [Suspect]
     Active Substance: DEXTROSE MONOHYDRATE
     Indication: Medication dilution
     Dosage: 250 ML (5%), ONE TIME IN ONE DAY, USED TO DILUTE PIRARUBICIN HYDROCHLORIDE FOR INJECTION 97MG, DOSAG
     Route: 041
     Dates: start: 20240920, end: 20240920
  5. PIRARUBICIN HYDROCHLORIDE [Suspect]
     Active Substance: PIRARUBICIN HYDROCHLORIDE
     Indication: Breast cancer female
     Dosage: 97 MG, ONE TIME IN ONE DAY, DILUTED WITH 250ML OF 5% GLUCOSE
     Route: 041
     Dates: start: 20240920, end: 20240920
  6. PIRARUBICIN HYDROCHLORIDE [Suspect]
     Active Substance: PIRARUBICIN HYDROCHLORIDE
     Indication: Chemotherapy

REACTIONS (5)
  - Myelosuppression [Unknown]
  - White blood cell count decreased [Recovering/Resolving]
  - Neutrophil count decreased [Recovering/Resolving]
  - Hepatic function abnormal [Recovering/Resolving]
  - Nausea [Unknown]

NARRATIVE: CASE EVENT DATE: 20241010
